FAERS Safety Report 6267277-1 (Version None)
Quarter: 2009Q3

REPORT INFORMATION
  Report Type: 
  Country: None (occurrence: None)
  Receive Date: 20090714
  Receipt Date: 20090327
  Transmission Date: 20100115
  Serious: Yes (Other)
  Sender: FDA-Public Use
  Company Number: JP-PFIZER INC-2009235882

PATIENT
  Age: 58 Year

DRUGS (1)
  1. MIGLITOL [Suspect]
     Dosage: 150 MG, UNK
     Route: 048
     Dates: start: 20081209, end: 20090309

REACTIONS (3)
  - ALANINE AMINOTRANSFERASE INCREASED [None]
  - ASPARTATE AMINOTRANSFERASE INCREASED [None]
  - HEPATIC FUNCTION ABNORMAL [None]
